FAERS Safety Report 5309846-9 (Version None)
Quarter: 2007Q2

REPORT INFORMATION
  Report Type: 
  Country: None (occurrence: None)
  Receive Date: 20070427
  Receipt Date: 20070416
  Transmission Date: 20071010
  Serious: Yes (Other)
  Sender: FDA-Public Use
  Company Number: PHNU2007DE01539

PATIENT
  Sex: Male

DRUGS (1)
  1. CLOZAPINE [Suspect]
     Indication: SCHIZOPHRENIA, DISORGANISED TYPE
     Dosage: 400MG/DAY
     Route: 048
     Dates: start: 20060817, end: 20070415

REACTIONS (7)
  - COUGH [None]
  - INFLUENZA [None]
  - LEUKOPENIA [None]
  - MALAISE [None]
  - MONOCYTE COUNT INCREASED [None]
  - NEUTROPENIA [None]
  - PYREXIA [None]
